FAERS Safety Report 25573130 (Version 2)
Quarter: 2025Q3

REPORT INFORMATION
  Report Type: Spontaneous
  Country: AU (occurrence: AU)
  Receive Date: 20250717
  Receipt Date: 20250904
  Transmission Date: 20251020
  Serious: Yes (Hospitalization)
  Sender: ROCHE
  Company Number: AU-002147023-NVSC2025AU111485

PATIENT
  Sex: Female

DRUGS (2)
  1. XOLAIR [Suspect]
     Active Substance: OMALIZUMAB
     Indication: Product used for unknown indication
     Route: 064
  2. XOLAIR [Suspect]
     Active Substance: OMALIZUMAB
     Route: 063

REACTIONS (5)
  - COVID-19 [Unknown]
  - Urticaria [Unknown]
  - Exposure via breast milk [Unknown]
  - Umbilical cord short [Unknown]
  - Foetal exposure during pregnancy [Unknown]
